FAERS Safety Report 7518250-4 (Version None)
Quarter: 2011Q2

REPORT INFORMATION
  Report Type: 
  Country: None (occurrence: None)
  Receive Date: 20110601
  Receipt Date: 20110601
  Transmission Date: 20111010
  Serious: Yes (Life-Threatening, Other)
  Sender: FDA-Public Use
  Company Number: None

PATIENT
  Sex: Female
  Weight: 77.5651 kg

DRUGS (1)
  1. NABUMETONE [Suspect]
     Indication: PAIN
     Dosage: TOOK 1 TABLET ONLY (1 DAY ONLY) 2/1/2011 3 PM
     Dates: start: 20110201

REACTIONS (4)
  - CIRCUMSTANCE OR INFORMATION CAPABLE OF LEADING TO MEDICATION ERROR [None]
  - DEVICE TOXICITY [None]
  - PRODUCT QUALITY ISSUE [None]
  - PRODUCT LABEL ISSUE [None]
